FAERS Safety Report 13705470 (Version 1)
Quarter: 2017Q2

REPORT INFORMATION
  Report Type: Spontaneous
  Country: GB (occurrence: GB)
  Receive Date: 20170630
  Receipt Date: 20170630
  Transmission Date: 20170830
  Serious: Yes (Death, Other)
  Sender: FDA-Public Use
  Company Number: GB-ASTRAZENECA-2017SE67282

PATIENT
  Age: 19 Year
  Sex: Male
  Weight: 100 kg

DRUGS (28)
  1. RANITIDINE. [Concomitant]
     Active Substance: RANITIDINE
  2. SODIUM PICOSULFATE [Concomitant]
     Active Substance: SODIUM PICOSULFATE
  3. CODEINE PHOSPHATE [Concomitant]
     Active Substance: CODEINE PHOSPHATE
  4. NOREPINEPHRINE. [Concomitant]
     Active Substance: NOREPINEPHRINE
  5. SENNA [Concomitant]
     Active Substance: SENNA LEAF\SENNOSIDES\SENNOSIDES A AND B
  6. MAGNESIUM SULPHATE [Concomitant]
     Active Substance: MAGNESIUM SULFATE
  7. MIDAZOLAM [Concomitant]
     Active Substance: MIDAZOLAM HYDROCHLORIDE
  8. HALOPERIDOL. [Suspect]
     Active Substance: HALOPERIDOL
     Indication: AGITATION
     Dosage: 2.5 AS NECESSARY
     Route: 065
     Dates: start: 20170204, end: 20170206
  9. ENOXAPARIN [Concomitant]
     Active Substance: ENOXAPARIN
  10. LEVETIRACETAM. [Concomitant]
     Active Substance: LEVETIRACETAM
  11. TRANEXAMIC ACID. [Concomitant]
     Active Substance: TRANEXAMIC ACID
  12. CO-AMOXICLAV [Concomitant]
     Active Substance: AMOXICILLIN\CLAVULANIC ACID
  13. CLONIDINE. [Concomitant]
     Active Substance: CLONIDINE
  14. FUROSEMIDE. [Concomitant]
     Active Substance: FUROSEMIDE
  15. LABETALOL [Concomitant]
     Active Substance: LABETALOL\LABETALOL HYDROCHLORIDE
  16. PARACETAMOL [Concomitant]
     Active Substance: ACETAMINOPHEN
  17. ATRACURIUM [Concomitant]
     Active Substance: ATRACURIUM
  18. HYDROCORTISONE. [Concomitant]
     Active Substance: HYDROCORTISONE
  19. QUETIAPINE FUMARATE. [Suspect]
     Active Substance: QUETIAPINE FUMARATE
     Indication: AGITATION
     Route: 048
     Dates: start: 20170125, end: 20170204
  20. LACTULOSE. [Concomitant]
     Active Substance: LACTULOSE
  21. MEROPENEM. [Concomitant]
     Active Substance: MEROPENEM
  22. MORPHINE SULPHATE [Concomitant]
     Active Substance: MORPHINE SULFATE
  23. N-ACETYLCYSTEINE [Concomitant]
     Active Substance: ACETYLCYSTEINE
  24. OMEPRAZOLE. [Concomitant]
     Active Substance: OMEPRAZOLE
  25. QUETIAPINE FUMARATE. [Suspect]
     Active Substance: QUETIAPINE FUMARATE
     Indication: AGITATION
     Route: 048
     Dates: start: 20170204, end: 20170206
  26. CARBAMAZEPINE. [Concomitant]
     Active Substance: CARBAMAZEPINE
  27. LORAZEPAM. [Concomitant]
     Active Substance: LORAZEPAM
  28. PROPOFOL. [Concomitant]
     Active Substance: PROPOFOL

REACTIONS (6)
  - Autonomic nervous system imbalance [Unknown]
  - Body temperature increased [Unknown]
  - Cardiac arrest [Unknown]
  - Tremor [Unknown]
  - Athetosis [Unknown]
  - Neuroleptic malignant syndrome [Fatal]

NARRATIVE: CASE EVENT DATE: 20170205
